FAERS Safety Report 5726710-1 (Version None)
Quarter: 2008Q2

REPORT INFORMATION
  Report Type: 
  Country: None (occurrence: None)
  Receive Date: 20080502
  Receipt Date: 20080422
  Transmission Date: 20081010
  Serious: Yes (Other)
  Sender: FDA-Public Use
  Company Number: BR-PFIZER INC-2007065847

PATIENT
  Sex: Female
  Weight: 73 kg

DRUGS (3)
  1. DETRUSITOL LA [Suspect]
     Indication: HYPERTONIC BLADDER
     Route: 048
     Dates: start: 20070726, end: 20070729
  2. ENALAPRIL MALEATE [Concomitant]
     Route: 048
  3. LEXOTAN [Concomitant]
     Route: 048

REACTIONS (6)
  - ARTERIAL DISORDER [None]
  - BLOOD PRESSURE INCREASED [None]
  - DIZZINESS [None]
  - HEART RATE INCREASED [None]
  - MALAISE [None]
  - PALPITATIONS [None]
